FAERS Safety Report 10663038 (Version 1)
Quarter: 2014Q4

REPORT INFORMATION
  Report Type: Spontaneous
  Country: US (occurrence: US)
  Receive Date: 20141218
  Receipt Date: 20141218
  Transmission Date: 20150529
  Serious: Yes (Other)
  Sender: FDA-Public Use
  Company Number: CHPA2014US016497

PATIENT

DRUGS (2)
  1. TRANSDERM SCOP [Suspect]
     Active Substance: SCOPOLAMINE
     Indication: OFF LABEL USE
  2. TRANSDERM SCOP [Suspect]
     Active Substance: SCOPOLAMINE
     Indication: DEPRESSION
     Dosage: UNK UNK, Q72H
     Route: 062

REACTIONS (8)
  - Mydriasis [Unknown]
  - Anxiety [Unknown]
  - Drug withdrawal syndrome [Unknown]
  - Agitation [Unknown]
  - Depression [Unknown]
  - Mental impairment [Unknown]
  - Panic attack [Unknown]
  - Wrong technique in drug usage process [Unknown]
